FAERS Safety Report 15976721 (Version 2)
Quarter: 2019Q1

REPORT INFORMATION
  Report Type: Spontaneous
  Country: SA (occurrence: SA)
  Receive Date: 20190218
  Receipt Date: 20190311
  Transmission Date: 20190418
  Serious: Yes (Death)
  Sender: FDA-Public Use
  Company Number: SA-SA-2019SA045699

PATIENT
  Age: 1 Year
  Sex: Male
  Weight: 8 kg

DRUGS (1)
  1. MYOZYME [Suspect]
     Active Substance: ALGLUCOSIDASE ALFA
     Indication: GLYCOGEN STORAGE DISEASE TYPE II
     Dosage: 20 MG/KG, QOW
     Route: 041

REACTIONS (4)
  - Obstructive airways disorder [Fatal]
  - Productive cough [Fatal]
  - Disease complication [Fatal]
  - Dyspnoea [Fatal]
